FAERS Safety Report 7133537-5 (Version None)
Quarter: 2010Q4

REPORT INFORMATION
  Report Type: 
  Country: None (occurrence: None)
  Receive Date: 20101202
  Receipt Date: 20101108
  Transmission Date: 20110411
  Serious: Yes (Other)
  Sender: FDA-Public Use
  Company Number: PHHY2010US76209

PATIENT
  Age: 23 Year
  Sex: Female

DRUGS (2)
  1. FANAPT [Suspect]
     Indication: SCHIZOPHRENIA
     Dosage: 8 MG, BID
     Route: 048
  2. HALOPERIDOL [Concomitant]
     Dosage: UNK

REACTIONS (3)
  - DYSTONIA [None]
  - LIP SWELLING [None]
  - SWOLLEN TONGUE [None]
